FAERS Safety Report 14732973 (Version 1)
Quarter: 2018Q2

REPORT INFORMATION
  Report Type: Spontaneous
  Country: US (occurrence: US)
  Receive Date: 20180409
  Receipt Date: 20180409
  Transmission Date: 20180711
  Serious: Yes (Other)
  Sender: FDA-Public Use
  Company Number: US-STRIDES ARCOLAB LIMITED-2018SP002683

PATIENT

DRUGS (1)
  1. VANCOMYCIN [Suspect]
     Active Substance: VANCOMYCIN
     Indication: PRODUCT USED FOR UNKNOWN INDICATION
     Dosage: UNK (1 MG/0.1ML, INTRACAMERAL)
     Route: 065

REACTIONS (12)
  - Visual impairment [Not Recovered/Not Resolved]
  - Choroidal detachment [Recovered/Resolved]
  - Retinal haemorrhage [Recovered/Resolved]
  - Eye pain [Recovered/Resolved]
  - Iridoschisis [Recovered/Resolved]
  - Retinal vascular occlusion [Recovered/Resolved]
  - Ocular discomfort [Recovered/Resolved]
  - Corneal oedema [Recovered/Resolved]
  - Anterior chamber fibrin [Recovered/Resolved]
  - Blindness [Not Recovered/Not Resolved]
  - Retinal vasculitis [Recovered/Resolved]
  - Hypotony of eye [Recovered/Resolved]
